FAERS Safety Report 6450317-4 (Version None)
Quarter: 2009Q4

REPORT INFORMATION
  Report Type: 
  Country: None (occurrence: None)
  Receive Date: 20091123
  Receipt Date: 20091117
  Transmission Date: 20100525
  Serious: Yes (Death)
  Sender: FDA-Public Use
  Company Number: GB-ROCHE-669192

PATIENT
  Age: 22 Year
  Sex: Male

DRUGS (2)
  1. TAMIFLU [Suspect]
     Dosage: DOSE 75 MG.
     Route: 065
     Dates: start: 20091027, end: 20091101
  2. METOCLOPRAMIDE HCL [Suspect]
     Indication: NAUSEA
     Dosage: DOSE 10 MG.
     Route: 065
     Dates: start: 20091027, end: 20091101

REACTIONS (1)
  - DEATH [None]
